FAERS Safety Report 20570427 (Version 2)
Quarter: 2023Q2

REPORT INFORMATION
  Report Type: Spontaneous
  Country: US (occurrence: US)
  Receive Date: 20220309
  Receipt Date: 20230523
  Transmission Date: 20230722
  Serious: Yes (Hospitalization, Disabling, Other)
  Sender: FDA-Public Use
  Company Number: US-ORGANON-O2203USA000618

PATIENT
  Sex: Male

DRUGS (1)
  1. SINGULAIR [Suspect]
     Active Substance: MONTELUKAST SODIUM
     Indication: Seasonal allergy
     Dosage: UNK
     Route: 048
     Dates: start: 2016, end: 2021

REACTIONS (10)
  - Neuropsychiatric symptoms [Not Recovered/Not Resolved]
  - Depression [Not Recovered/Not Resolved]
  - Suicide attempt [Unknown]
  - Anger [Unknown]
  - Road traffic accident [Unknown]
  - Face injury [Unknown]
  - Post-traumatic stress disorder [Unknown]
  - Chronic obstructive pulmonary disease [Unknown]
  - Hypersensitivity [Unknown]
  - Pain [Unknown]
